FAERS Safety Report 4384183-8 (Version None)
Quarter: 2004Q2

REPORT INFORMATION
  Report Type: 
  Country: None (occurrence: None)
  Receive Date: 20040621
  Receipt Date: 20040609
  Transmission Date: 20050107
  Serious: Yes (Life-Threatening, Hospitalization)
  Sender: FDA-Public Use
  Company Number: 2004218603FR

PATIENT
  Age: 73 Year
  Sex: Female

DRUGS (5)
  1. CELEBREX [Suspect]
     Indication: LOCALISED OSTEOARTHRITIS
     Dosage: 200 MG, QD, ORAL
     Route: 048
     Dates: start: 20040521
  2. ART 50 (DIACERIN) [Concomitant]
  3. FENOFIBRATE [Concomitant]
  4. LODOZ [Concomitant]
  5. EUPANTOL [Concomitant]

REACTIONS (3)
  - INTESTINAL OBSTRUCTION [None]
  - INTESTINAL PERFORATION [None]
  - PERITONITIS [None]
